FAERS Safety Report 4929545-2 (Version None)
Quarter: 2006Q1

REPORT INFORMATION
  Report Type: 
  Country: None (occurrence: None)
  Receive Date: 20060223
  Receipt Date: 20060210
  Transmission Date: 20060701
  Serious: Yes (Hospitalization, Other)
  Sender: FDA-Public Use
  Company Number: 2006021381

PATIENT
  Sex: Male
  Weight: 81.6475 kg

DRUGS (6)
  1. ZYRTEC [Suspect]
     Indication: MULTIPLE ALLERGIES
     Dosage: 10 MG
  2. LIPITOR [Suspect]
     Indication: BLOOD CHOLESTEROL
     Dosage: 10 MG
     Dates: start: 19970101
  3. METOPROLOL [Concomitant]
  4. LEVOTHYROXINE SODIUM [Concomitant]
  5. LANOXIN [Concomitant]
  6. ALL OTHER THERAPEUTIC PRODUCS [Concomitant]

REACTIONS (5)
  - INFECTION IN AN IMMUNOCOMPROMISED HOST [None]
  - MUSCLE SPASMS [None]
  - MYOCARDIAL INFARCTION [None]
  - VOMITING [None]
  - WHITE BLOOD CELL COUNT INCREASED [None]
